FAERS Safety Report 10481113 (Version 1)
Quarter: 2014Q3

REPORT INFORMATION
  Report Type: Spontaneous
  Country: US (occurrence: None)
  Receive Date: 20140908
  Receipt Date: 20140908
  Transmission Date: 20150326
  Serious: Yes (Other)
  Sender: FDA-Public Use
  Company Number: 391498

PATIENT
  Age: 58 Year
  Sex: Female

DRUGS (5)
  1. LEVEMIR FLEXPEN (INUSLIN DETERMIR) [Concomitant]
  2. ZOCOR [Concomitant]
     Active Substance: SIMVASTATIN
  3. AZATHIOPRINE (AZATHIOPRINE) [Concomitant]
     Active Substance: AZATHIOPRINE
  4. ZOLOFT [Concomitant]
     Active Substance: SERTRALINE HYDROCHLORIDE
  5. VICTOZA [Suspect]
     Active Substance: LIRAGLUTIDE
     Indication: TYPE 2 DIABETES MELLITUS
     Route: 058
     Dates: start: 20120608, end: 201206

REACTIONS (1)
  - Pancreatitis [None]

NARRATIVE: CASE EVENT DATE: 20121008
